FAERS Safety Report 19657774 (Version 3)
Quarter: 2022Q1

REPORT INFORMATION
  Report Type: Spontaneous
  Country: US (occurrence: US)
  Receive Date: 20210804
  Receipt Date: 20220307
  Transmission Date: 20220423
  Serious: Yes (Other)
  Sender: FDA-Public Use
  Company Number: US-AUROBINDO-AUR-APL-2021-033248

PATIENT
  Age: 81 Year
  Sex: Female
  Weight: 63.5 kg

DRUGS (5)
  1. AMIODARONE HYDROCHLORIDE [Suspect]
     Active Substance: AMIODARONE HYDROCHLORIDE
     Indication: Product used for unknown indication
     Dosage: UNK UNK, TWO TIMES A DAY
     Route: 065
     Dates: start: 20210311
  2. AMIODARONE HYDROCHLORIDE [Suspect]
     Active Substance: AMIODARONE HYDROCHLORIDE
     Dosage: 100 MILLIGRAM, 3 DAYS A WEEK
     Route: 065
  3. ENTRESTO [Suspect]
     Active Substance: SACUBITRIL\VALSARTAN
     Indication: Product used for unknown indication
     Dosage: 97/103MG, TWO TIMES A DAY
     Route: 048
     Dates: start: 202101
  4. ENTRESTO [Suspect]
     Active Substance: SACUBITRIL\VALSARTAN
     Dosage: 49/51MG, TWO TIMES A DAY
     Route: 048
  5. CARVEDILOL [Suspect]
     Active Substance: CARVEDILOL
     Indication: Product used for unknown indication
     Dosage: UNK
     Route: 065

REACTIONS (10)
  - Blindness [Unknown]
  - Hypotension [Not Recovered/Not Resolved]
  - Headache [Unknown]
  - Dyspnoea [Unknown]
  - Weight decreased [Unknown]
  - Product dose omission issue [Unknown]
  - Vision blurred [Recovering/Resolving]
  - Fatigue [Recovering/Resolving]
  - Stress [Unknown]
  - COVID-19 [Unknown]

NARRATIVE: CASE EVENT DATE: 20210420
